FAERS Safety Report 17123460 (Version 2)
Quarter: 2019Q4

REPORT INFORMATION
  Report Type: Spontaneous
  Country: US (occurrence: US)
  Receive Date: 20191206
  Receipt Date: 20191212
  Transmission Date: 20200122
  Serious: Yes (Hospitalization)
  Sender: FDA-Public Use
  Company Number: US-BIOMARINAP-US-2019-127205

PATIENT
  Sex: Male
  Weight: 32.4 kg

DRUGS (7)
  1. FERROUS SULFATE. [Concomitant]
     Active Substance: FERROUS SULFATE
     Indication: PRODUCT USED FOR UNKNOWN INDICATION
     Dosage: 5 MILLILITER, QD
     Route: 048
  2. KEPPRA [Concomitant]
     Active Substance: LEVETIRACETAM
     Indication: PRODUCT USED FOR UNKNOWN INDICATION
     Dosage: 5 MILLILITER, BID
     Route: 048
  3. POLYETHYLENE GLYCOL [Concomitant]
     Active Substance: POLYETHYLENE GLYCOLS
     Indication: PRODUCT USED FOR UNKNOWN INDICATION
     Dosage: 8.5 GRAM, QD
     Route: 048
  4. VITAMIN C [Concomitant]
     Active Substance: ASCORBIC ACID
     Indication: PRODUCT USED FOR UNKNOWN INDICATION
     Dosage: 500 MILLIGRAM, QD
     Route: 048
  5. CLARITIN [Concomitant]
     Active Substance: LORATADINE
     Indication: PREMEDICATION
     Dosage: 10 MILLILITER, QW
     Route: 048
  6. VITAMIN D [VITAMIN D NOS] [Concomitant]
     Active Substance: VITAMIN D NOS
     Indication: PRODUCT USED FOR UNKNOWN INDICATION
     Dosage: 1000 INTERNATIONAL UNIT, QD
     Route: 048
  7. NAGLAZYME [Suspect]
     Active Substance: GALSULFASE
     Indication: MUCOPOLYSACCHARIDOSIS VI
     Dosage: 35 MILLIGRAM, QW
     Route: 042
     Dates: start: 20190122

REACTIONS (4)
  - Staphylococcal bacteraemia [Recovered/Resolved]
  - Product dose omission [Unknown]
  - Pyrexia [Recovered/Resolved]
  - Device related infection [Recovered/Resolved]

NARRATIVE: CASE EVENT DATE: 20191030
